FAERS Safety Report 10925614 (Version 1)
Quarter: 2015Q1

REPORT INFORMATION
  Report Type: Spontaneous
  Country: US (occurrence: US)
  Receive Date: 20150318
  Receipt Date: 20150318
  Transmission Date: 20150721
  Serious: Yes (Death, Life-Threatening, Hospitalization, Other)
  Sender: FDA-Public Use
  Company Number: US-AMGEN-USASP2015023166

PATIENT
  Age: 67 Year
  Sex: Male
  Weight: 65.2 kg

DRUGS (2)
  1. CABOZANTINIB [Suspect]
     Active Substance: CABOZANTINIB
     Indication: PRODUCT USED FOR UNKNOWN INDICATION
     Dosage: 60 MG, QD
     Route: 048
     Dates: start: 20131114
  2. XGEVA [Suspect]
     Active Substance: DENOSUMAB
     Indication: METASTASES TO BONE
     Dosage: UNK
     Route: 065

REACTIONS (17)
  - Mental status changes [Recovering/Resolving]
  - Decreased activity [Unknown]
  - Pain in extremity [Unknown]
  - Hypocalcaemia [Recovered/Resolved]
  - Aspartate aminotransferase increased [Unknown]
  - Abscess [Unknown]
  - Hypotension [Not Recovered/Not Resolved]
  - Sepsis [Fatal]
  - Deep vein thrombosis [Unknown]
  - Aortic stenosis [Unknown]
  - Oedema peripheral [Unknown]
  - Malnutrition [Unknown]
  - Large intestine perforation [Unknown]
  - Escherichia infection [Unknown]
  - Anaemia [Unknown]
  - Alanine aminotransferase increased [Unknown]
  - Neuralgia [Unknown]

NARRATIVE: CASE EVENT DATE: 20150109
